FAERS Safety Report 5493742-0 (Version None)
Quarter: 2007Q4

REPORT INFORMATION
  Report Type: 
  Country: None (occurrence: None)
  Receive Date: 20071015
  Receipt Date: 20070626
  Transmission Date: 20080405
  Serious: No
  Sender: FDA-Public Use
  Company Number: 2007SP002070

PATIENT
  Age: 53 Year
  Sex: Female
  Weight: 56.6996 kg

DRUGS (12)
  1. LUNESTA [Suspect]
     Indication: INSOMNIA
     Dosage: 3 MG; PRN; ORAL
     Route: 048
     Dates: start: 20060101
  2. MUCINEX [Concomitant]
  3. PSEUDOEPHEDRINE HCL [Concomitant]
  4. CALCIUM [Concomitant]
  5. MAGNESIUM SULFATE [Concomitant]
  6. GLUCOSAMINE [Concomitant]
  7. CRANBERRY EXTRACT [Concomitant]
  8. ROBAXIN [Concomitant]
  9. ZINC [Concomitant]
  10. TYLENOL [Concomitant]
  11. LEVAQUIN [Concomitant]
  12. AMBIEN [Concomitant]

REACTIONS (4)
  - AMNESIA [None]
  - DISORIENTATION [None]
  - DYSGEUSIA [None]
  - RENAL PAIN [None]
